FAERS Safety Report 6544179-4 (Version None)
Quarter: 2010Q1

REPORT INFORMATION
  Report Type: 
  Country: None (occurrence: None)
  Receive Date: 20100119
  Receipt Date: 20100119
  Transmission Date: 20100710
  Serious: Yes (Hospitalization, Other)
  Sender: FDA-Public Use
  Company Number: None

PATIENT
  Age: 51 Year
  Sex: Female
  Weight: 68.0396 kg

DRUGS (2)
  1. TYLENOL [Suspect]
     Indication: RHEUMATOID ARTHRITIS
     Dosage: 2 3XS DAY
     Dates: start: 20090301, end: 20100106
  2. TYLENOL [Suspect]
     Indication: RHEUMATOID ARTHRITIS
     Dosage: 4  2X DAY
     Dates: start: 20091001, end: 20100106

REACTIONS (14)
  - ABDOMINAL DISTENSION [None]
  - ABDOMINAL PAIN UPPER [None]
  - BLOOD PRESSURE INCREASED [None]
  - CARDIAC DISORDER [None]
  - DECREASED APPETITE [None]
  - DIARRHOEA [None]
  - DIZZINESS [None]
  - DYSPNOEA [None]
  - DYSSTASIA [None]
  - FATIGUE [None]
  - GASTRIC DISORDER [None]
  - HYPERHIDROSIS [None]
  - MUSCLE SPASMS [None]
  - NAUSEA [None]
